FAERS Safety Report 16209510 (Version 10)
Quarter: 2020Q2

REPORT INFORMATION
  Report Type: Spontaneous
  Country: US (occurrence: US)
  Receive Date: 20190417
  Receipt Date: 20200625
  Transmission Date: 20200713
  Serious: No
  Sender: FDA-Public Use
  Company Number: US-ACTELION-A-NJ2019-188286

PATIENT
  Age: 49 Year
  Sex: Female
  Weight: 56.69 kg

DRUGS (5)
  1. UPTRAVI [Suspect]
     Active Substance: SELEXIPAG
     Dosage: 200 MCG, BID
     Route: 048
     Dates: start: 20190919
  2. SILDENAFIL. [Concomitant]
     Active Substance: SILDENAFIL
  3. UPTRAVI [Suspect]
     Active Substance: SELEXIPAG
     Dosage: 800 MCG, BID
     Route: 048
     Dates: end: 20190903
  4. OPSUMIT [Suspect]
     Active Substance: MACITENTAN
     Indication: PULMONARY ARTERIAL HYPERTENSION
     Dosage: 10 MG, QD
     Route: 048
     Dates: start: 20160420
  5. UPTRAVI [Suspect]
     Active Substance: SELEXIPAG
     Indication: PULMONARY ARTERIAL HYPERTENSION
     Dosage: 400 MCG, BID
     Route: 048
     Dates: start: 20190503

REACTIONS (19)
  - Tooth infection [Unknown]
  - Pharyngitis [Unknown]
  - Ear infection [Unknown]
  - Chest discomfort [Recovering/Resolving]
  - Nephrolithiasis [Unknown]
  - Dizziness [Recovered/Resolved]
  - Head discomfort [Recovering/Resolving]
  - Nausea [Recovered/Resolved]
  - Product dose omission [Unknown]
  - Fatigue [Unknown]
  - Back pain [Unknown]
  - Vomiting [Unknown]
  - Dry mouth [Unknown]
  - Peripheral swelling [Unknown]
  - Pain [Recovered/Resolved]
  - Decreased appetite [Unknown]
  - Limb discomfort [Unknown]
  - Pain in extremity [Unknown]
  - Headache [Recovered/Resolved]

NARRATIVE: CASE EVENT DATE: 201905
